FAERS Safety Report 17821564 (Version 1)
Quarter: 2020Q2

REPORT INFORMATION
  Report Type: Spontaneous
  Country: US (occurrence: US)
  Receive Date: 20200525
  Receipt Date: 20200525
  Transmission Date: 20200714
  Serious: No
  Sender: FDA-Public Use
  Company Number: US-GLAXOSMITHKLINE-US2020085264

PATIENT
  Sex: Female

DRUGS (1)
  1. ADVAIR DISKUS [Suspect]
     Active Substance: FLUTICASONE PROPIONATE\SALMETEROL XINAFOATE
     Indication: PRODUCT USED FOR UNKNOWN INDICATION
     Dosage: UNK
     Route: 065
     Dates: start: 202003

REACTIONS (6)
  - Dyspnoea [Not Recovered/Not Resolved]
  - Product dose omission [Unknown]
  - Rhinorrhoea [Not Recovered/Not Resolved]
  - Hypersensitivity [Unknown]
  - Condition aggravated [Unknown]
  - Asthma [Not Recovered/Not Resolved]
